FAERS Safety Report 12659942 (Version 4)
Quarter: 2025Q1

REPORT INFORMATION
  Report Type: Report from Study
  Country: US (occurrence: US)
  Receive Date: 20160817
  Receipt Date: 20250310
  Transmission Date: 20250409
  Serious: Yes (Other)
  Sender: TAKEDA
  Company Number: US-SHIRE-2016DX000217

PATIENT
  Sex: Female
  Weight: 88 kg

DRUGS (14)
  1. LANADELUMAB [Suspect]
     Active Substance: LANADELUMAB
     Indication: Immune system disorder
     Dosage: 300 MILLIGRAM, Q2WEEKS
     Dates: start: 20201224
  2. LANADELUMAB [Suspect]
     Active Substance: LANADELUMAB
  3. LANADELUMAB [Suspect]
     Active Substance: LANADELUMAB
  4. KALBITOR [Suspect]
     Active Substance: ECALLANTIDE
     Indication: Product used for unknown indication
  5. VYVANSE [Concomitant]
     Active Substance: LISDEXAMFETAMINE DIMESYLATE
  6. BUPROPION [Concomitant]
     Active Substance: BUPROPION
  7. Coq [Concomitant]
  8. LEVOTHYROXINE SODIUM [Concomitant]
     Active Substance: LEVOTHYROXINE SODIUM
  9. PRISTIQ EXTENDED-RELEASE [Concomitant]
     Active Substance: DESVENLAFAXINE SUCCINATE
  10. MELOXICAM [Concomitant]
     Active Substance: MELOXICAM
  11. Omega [Concomitant]
  12. SULFASALAZINE [Concomitant]
     Active Substance: SULFASALAZINE
  13. Omega+D [Concomitant]
  14. SAJAZIR [Concomitant]
     Active Substance: ICATIBANT ACETATE

REACTIONS (8)
  - Sepsis [Unknown]
  - Gastroenteritis viral [Recovered/Resolved]
  - Feeling abnormal [Recovered/Resolved]
  - Mononucleosis heterophile test positive [Unknown]
  - Procedural site reaction [Unknown]
  - Nail bed infection [Recovering/Resolving]
  - Stress [Unknown]
  - Hereditary angioedema [Unknown]
